FAERS Safety Report 16732660 (Version 12)
Quarter: 2020Q1

REPORT INFORMATION
  Report Type: Spontaneous
  Country: PL (occurrence: PL)
  Receive Date: 20190823
  Receipt Date: 20200307
  Transmission Date: 20200409
  Serious: Yes (Death, Life-Threatening, Hospitalization, Other)
  Sender: FDA-Public Use
  Company Number: PL-AUROBINDO-AUR-APL-2019-055522

PATIENT
  Age: 46 Year
  Sex: Female

DRUGS (52)
  1. PANTOPRAZOLE [Interacting]
     Active Substance: PANTOPRAZOLE
     Dosage: 10 MILLIGRAM, ONCE A DAY
     Route: 048
  2. CEFUROXIME. [Interacting]
     Active Substance: CEFUROXIME
     Indication: URINARY TRACT INFECTION
     Dosage: 50 MILLIGRAM, ONCE A DAY
     Route: 048
  3. AMOXICILLIN+CLAVULANIC ACID [Interacting]
     Active Substance: AMOXICILLIN\CLAVULANIC ACID
     Indication: WHITE BLOOD CELLS URINE
  4. CIPROFLOXACIN. [Interacting]
     Active Substance: CIPROFLOXACIN
     Indication: BACTERIAL TEST
  5. NIFUROXAZIDE [Interacting]
     Active Substance: NIFUROXAZIDE
     Indication: ABDOMINAL PAIN
  6. NIFUROXAZIDE [Interacting]
     Active Substance: NIFUROXAZIDE
     Indication: URINARY TRACT INFECTION
  7. OLANZAPINE. [Interacting]
     Active Substance: OLANZAPINE
     Indication: BIPOLAR DISORDER
     Dosage: UNK
     Route: 048
  8. ITOPRIDE [Interacting]
     Active Substance: ITOPRIDE
     Indication: GASTROOESOPHAGEAL REFLUX DISEASE
     Dosage: 50 MILLIGRAM, ONCE A DAY
     Route: 048
  9. ITOPRIDE [Interacting]
     Active Substance: ITOPRIDE
     Dosage: 50 MILLIGRAM, 3 TIMES A DAY
     Route: 065
  10. COTRIMOXAZOLE [Interacting]
     Active Substance: SULFAMETHOXAZOLE\TRIMETHOPRIM
     Indication: BACTERIURIA
  11. COTRIMOXAZOLE [Interacting]
     Active Substance: SULFAMETHOXAZOLE\TRIMETHOPRIM
     Indication: ANTIBIOTIC THERAPY
  12. CIPROFLOXACIN. [Interacting]
     Active Substance: CIPROFLOXACIN
     Indication: LEUKOCYTOSIS
  13. SULFAMETOXAZOL MED TRIMETOPRIM [Suspect]
     Active Substance: SULFAMETHOXAZOLE\TRIMETHOPRIM
     Indication: ANTIBIOTIC THERAPY
     Dosage: UNK
     Route: 065
  14. LEVOFLOXACIN. [Suspect]
     Active Substance: LEVOFLOXACIN
     Indication: URINARY TRACT INFECTION
     Dosage: UNK
     Route: 065
  15. LEVOFLOXACIN. [Interacting]
     Active Substance: LEVOFLOXACIN
     Indication: BACTERIURIA
  16. LEVOFLOXACIN. [Interacting]
     Active Substance: LEVOFLOXACIN
     Indication: ANTIBIOTIC THERAPY
  17. CEFUROXIME. [Interacting]
     Active Substance: CEFUROXIME
     Indication: BACTERIAL INFECTION
     Dosage: UNK
     Route: 065
  18. AMOXICILLIN+CLAVULANIC ACID [Interacting]
     Active Substance: AMOXICILLIN\CLAVULANIC ACID
     Indication: BACTERIAL TEST
  19. OLANZAPINE. [Interacting]
     Active Substance: OLANZAPINE
     Dosage: 10 MILLIGRAM, ONCE A DAY
     Route: 048
  20. COTRIMOXAZOLE [Interacting]
     Active Substance: SULFAMETHOXAZOLE\TRIMETHOPRIM
     Indication: URINARY TRACT INFECTION
  21. CIPROFLOXACIN. [Interacting]
     Active Substance: CIPROFLOXACIN
     Indication: ANTIBIOTIC THERAPY
  22. SULFAMETOXAZOL MED TRIMETOPRIM [Suspect]
     Active Substance: SULFAMETHOXAZOLE\TRIMETHOPRIM
     Indication: BACTERIAL INFECTION
  23. SULFAMETOXAZOL MED TRIMETOPRIM [Suspect]
     Active Substance: SULFAMETHOXAZOLE\TRIMETHOPRIM
     Indication: URINARY TRACT INFECTION
  24. PANTOPRAZOLE [Interacting]
     Active Substance: PANTOPRAZOLE
     Indication: GASTROOESOPHAGEAL REFLUX DISEASE
     Dosage: 40 MILLIGRAM, ONCE A DAY
     Route: 048
  25. CEFUROXIME. [Interacting]
     Active Substance: CEFUROXIME
     Indication: BACTERIURIA
  26. AMOXICILLIN+CLAVULANIC ACID [Interacting]
     Active Substance: AMOXICILLIN\CLAVULANIC ACID
     Indication: BACTERIURIA
  27. ITOPRIDE [Interacting]
     Active Substance: ITOPRIDE
     Dosage: 50 MILLIGRAM, TWO TIMES A DAY
     Route: 048
  28. COTRIMOXAZOLE [Interacting]
     Active Substance: SULFAMETHOXAZOLE\TRIMETHOPRIM
     Indication: BACTERIAL INFECTION
     Dosage: UNK
     Route: 065
  29. COTRIMOXAZOLE [Interacting]
     Active Substance: SULFAMETHOXAZOLE\TRIMETHOPRIM
     Indication: BACTERIAL TEST POSITIVE
  30. CIPROFLOXACIN. [Interacting]
     Active Substance: CIPROFLOXACIN
     Indication: TRIMETHYLAMINURIA
  31. LEVOFLOXACIN. [Interacting]
     Active Substance: LEVOFLOXACIN
     Indication: BACTERIAL INFECTION
  32. AMOXICILLIN+CLAVULANIC ACID [Interacting]
     Active Substance: AMOXICILLIN\CLAVULANIC ACID
     Indication: URINARY TRACT INFECTION
     Dosage: UNK
     Route: 065
  33. AMOXICILLIN+CLAVULANIC ACID [Interacting]
     Active Substance: AMOXICILLIN\CLAVULANIC ACID
     Indication: ANTIBIOTIC THERAPY
  34. CIPROFLOXACIN. [Interacting]
     Active Substance: CIPROFLOXACIN
     Indication: URINARY TRACT INFECTION
     Dosage: UNK
     Route: 065
  35. NIFUROXAZIDE [Interacting]
     Active Substance: NIFUROXAZIDE
     Indication: TRIMETHYLAMINURIA
  36. CEFUROXIME AXETIL. [Interacting]
     Active Substance: CEFUROXIME AXETIL
     Indication: URINARY TRACT INFECTION
     Dosage: 150 MILLIGRAM, ONCE A DAY
     Route: 048
  37. LEVOFLOXACIN. [Interacting]
     Active Substance: LEVOFLOXACIN
     Indication: BACTERIAL TEST POSITIVE
  38. ARIPIPRAZOLE  TABLETS [Interacting]
     Active Substance: ARIPIPRAZOLE
     Indication: BIPOLAR DISORDER
     Dosage: UNK
     Route: 048
  39. ARIPIPRAZOLE. [Concomitant]
     Active Substance: ARIPIPRAZOLE
     Indication: BIPOLAR DISORDER
     Dosage: 7.5 MILLIGRAM, ONCE A DAY
     Route: 065
  40. CEFUROXIME. [Interacting]
     Active Substance: CEFUROXIME
     Indication: ANTIBIOTIC THERAPY
  41. CIPROFLOXACIN. [Interacting]
     Active Substance: CIPROFLOXACIN
     Indication: BACTERIAL TEST POSITIVE
  42. CIPROFLOXACIN. [Interacting]
     Active Substance: CIPROFLOXACIN
     Indication: BACTERIURIA
  43. CEFUROXIME AXETIL. [Interacting]
     Active Substance: CEFUROXIME AXETIL
     Indication: ANTIBIOTIC THERAPY
  44. TRIMETHOPRIM. [Suspect]
     Active Substance: TRIMETHOPRIM
     Indication: BACTERIURIA
     Dosage: UNK
     Route: 065
  45. LEVOFLOXACIN. [Interacting]
     Active Substance: LEVOFLOXACIN
     Indication: TRIMETHYLAMINURIA
  46. ARIPIPRAZOLE  TABLETS [Interacting]
     Active Substance: ARIPIPRAZOLE
     Dosage: 7.5 MILLIGRAM, ONCE A DAY
     Route: 048
  47. PANTOPRAZOLE [Interacting]
     Active Substance: PANTOPRAZOLE
     Indication: REFLUX GASTRITIS
     Dosage: UNK
     Route: 048
  48. CEFUROXIME. [Interacting]
     Active Substance: CEFUROXIME
     Indication: BACTERIAL TEST POSITIVE
  49. AMOXICILLIN+CLAVULANIC ACID [Interacting]
     Active Substance: AMOXICILLIN\CLAVULANIC ACID
     Indication: BACTERIAL TEST POSITIVE
  50. ITOPRIDE [Interacting]
     Active Substance: ITOPRIDE
     Indication: REFLUX GASTRITIS
     Dosage: 150 MILLIGRAM, DAILY, 50 MG, TID
     Route: 048
  51. NIFUROXAZIDE [Interacting]
     Active Substance: NIFUROXAZIDE
     Indication: DIARRHOEA
     Dosage: UNK
     Route: 065
  52. SULFAMETHOXAZOLE [Interacting]
     Active Substance: SULFAMETHOXAZOLE
     Indication: PRODUCT USED FOR UNKNOWN INDICATION
     Dosage: UNK
     Route: 065

REACTIONS (28)
  - Drug interaction [Fatal]
  - White blood cells urine positive [Fatal]
  - Pyrexia [Fatal]
  - Trimethylaminuria [Fatal]
  - Dysbiosis [Fatal]
  - Urine odour abnormal [Fatal]
  - Drug ineffective [Fatal]
  - Pseudomembranous colitis [Fatal]
  - Megacolon [Fatal]
  - Taste disorder [Not Recovered/Not Resolved]
  - Condition aggravated [Fatal]
  - Parosmia [Fatal]
  - Clostridium difficile infection [Fatal]
  - Diarrhoea [Fatal]
  - Inhibitory drug interaction [Fatal]
  - Drug resistance [Fatal]
  - Peritonitis [Fatal]
  - Dyspepsia [Fatal]
  - Abdominal pain upper [Fatal]
  - Breath odour [Fatal]
  - White blood cells urine [Unknown]
  - Bacterial test positive [Fatal]
  - Death [Fatal]
  - Abdominal pain [Not Recovered/Not Resolved]
  - Intestinal perforation [Fatal]
  - Gastrooesophageal reflux disease [Fatal]
  - Potentiating drug interaction [Unknown]
  - Oral discomfort [Fatal]
